FAERS Safety Report 8985682 (Version 1)
Quarter: 2012Q4

REPORT INFORMATION
  Report Type: 
  Country: NL (occurrence: NL)
  Receive Date: 20121226
  Receipt Date: 20121226
  Transmission Date: 20130627
  Serious: Yes (Other)
  Sender: FDA-Public Use
  Company Number: NL-JNJFOC-20121209191

PATIENT
  Sex: Male

DRUGS (2)
  1. REMICADE [Suspect]
     Indication: COLITIS ULCERATIVE
     Route: 042
     Dates: start: 201112, end: 201207
  2. MESALAZINE [Concomitant]
     Route: 065

REACTIONS (2)
  - Interstitial lung disease [Recovering/Resolving]
  - Intestinal perforation [Unknown]
